FAERS Safety Report 7164685-1 (Version None)
Quarter: 2010Q4

REPORT INFORMATION
  Report Type: 
  Country: None (occurrence: None)
  Receive Date: 20101215
  Receipt Date: 20101207
  Transmission Date: 20110411
  Serious: Yes (Other)
  Sender: FDA-Public Use
  Company Number: US-PFIZER INC-2010170113

PATIENT
  Age: 54 Year
  Sex: Female
  Weight: 136 kg

DRUGS (2)
  1. ADVIL [Suspect]
     Indication: ANALGESIC THERAPY
     Dosage: UNK
     Route: 048
     Dates: start: 20101206, end: 20101206
  2. LISINOPRIL [Concomitant]
     Indication: HYPERTENSION
     Dosage: 20 MG, UNK

REACTIONS (7)
  - EAR DISCOMFORT [None]
  - HYPERSENSITIVITY [None]
  - LACRIMATION INCREASED [None]
  - OEDEMA PERIPHERAL [None]
  - RASH [None]
  - RHINORRHOEA [None]
  - URTICARIA [None]
